FAERS Safety Report 23036000 (Version 2)
Quarter: 2023Q4

REPORT INFORMATION
  Report Type: Report from Study
  Country: CA (occurrence: CA)
  Receive Date: 20231006
  Receipt Date: 20231117
  Transmission Date: 20240110
  Serious: Yes (Other)
  Sender: FDA-Public Use
  Company Number: CA-JNJFOC-20230943715

PATIENT
  Age: 46 Year
  Sex: Female

DRUGS (1)
  1. REMICADE [Suspect]
     Active Substance: INFLIXIMAB
     Indication: Crohn^s disease
     Route: 042

REACTIONS (5)
  - Lower respiratory tract infection [Recovered/Resolved]
  - Rectal haemorrhage [Unknown]
  - COVID-19 [Not Recovered/Not Resolved]
  - Inflammation [Unknown]
  - Abdominal pain [Unknown]

NARRATIVE: CASE EVENT DATE: 20230901
